FAERS Safety Report 5502549-7 (Version None)
Quarter: 2007Q4

REPORT INFORMATION
  Report Type: 
  Country: None (occurrence: None)
  Receive Date: 20071030
  Receipt Date: 20071025
  Transmission Date: 20080405
  Serious: No
  Sender: FDA-Public Use
  Company Number: US-BOEHRINGER INGELHEIM PHARMACEUTICALS, INC.-2007-BP-23353BP

PATIENT
  Sex: Female

DRUGS (5)
  1. SPIRIVA [Suspect]
     Indication: CHRONIC OBSTRUCTIVE PULMONARY DISEASE
     Route: 055
     Dates: start: 20070401
  2. ZOLOFT [Concomitant]
  3. PROAIR HFA [Concomitant]
  4. ASMANEX TWISTHALER [Concomitant]
  5. LEVAQUIN [Concomitant]

REACTIONS (1)
  - PHARYNGOLARYNGEAL PAIN [None]
